FAERS Safety Report 5313384-7 (Version None)
Quarter: 2007Q2

REPORT INFORMATION
  Report Type: 
  Country: None (occurrence: None)
  Receive Date: 20070426
  Receipt Date: 20070426
  Transmission Date: 20071010
  Serious: Yes (Life-Threatening, Hospitalization)
  Sender: FDA-Public Use
  Company Number: None

PATIENT
  Age: 31 Year
  Sex: Male
  Weight: 77.1115 kg

DRUGS (1)
  1. IBUPROFEN [Suspect]
     Indication: PAIN
     Dosage: 3 TABS EVERY 3 HRS BUCCAL
     Route: 002

REACTIONS (16)
  - CHOLANGITIS [None]
  - CONSTIPATION [None]
  - ENDOCARDITIS [None]
  - HYPERBILIRUBINAEMIA [None]
  - ILL-DEFINED DISORDER [None]
  - JAUNDICE [None]
  - LEUKOCYTOSIS [None]
  - NAUSEA [None]
  - OCULAR ICTERUS [None]
  - OSTEOMYELITIS [None]
  - PAIN [None]
  - PAIN IN EXTREMITY [None]
  - REFUSAL OF TREATMENT BY PATIENT [None]
  - RENAL FAILURE ACUTE [None]
  - SINUS TACHYCARDIA [None]
  - VOMITING [None]
